FAERS Safety Report 5616048-5 (Version None)
Quarter: 2008Q1

REPORT INFORMATION
  Report Type: 
  Country: None (occurrence: None)
  Receive Date: 20080206
  Receipt Date: 20080128
  Transmission Date: 20080703
  Serious: Yes (Other)
  Sender: FDA-Public Use
  Company Number: JP-PFIZER INC-2007102729

PATIENT
  Sex: Male

DRUGS (8)
  1. ZITHROMAX [Suspect]
     Indication: BRONCHITIS
     Route: 048
     Dates: start: 20071129, end: 20071130
  2. ALL OTHER THERAPEUTIC PRODUCTS [Concomitant]
  3. NIFLAN [Concomitant]
     Dates: start: 20070101, end: 20071130
  4. HUSCODE [Concomitant]
  5. HUSTOSIL [Concomitant]
     Dates: start: 20071129, end: 20071129
  6. PA [Concomitant]
  7. DEPAS [Concomitant]
     Route: 048
     Dates: start: 20071107
  8. SELBEX [Concomitant]
     Route: 048
     Dates: start: 20071129

REACTIONS (6)
  - ANOREXIA [None]
  - ATRIAL FIBRILLATION [None]
  - CHILLS [None]
  - DYSPNOEA [None]
  - HYPERTHERMIA [None]
  - RASH [None]
